FAERS Safety Report 5227094-8 (Version None)
Quarter: 2007Q1

REPORT INFORMATION
  Report Type: 
  Country: None (occurrence: None)
  Receive Date: 20070201
  Receipt Date: 20070201
  Transmission Date: 20070707
  Serious: Yes (Death, Hospitalization)
  Sender: FDA-Public Use
  Company Number: None

PATIENT
  Age: 52 Year
  Sex: Male

DRUGS (2)
  1. ZIPRASIDONE HCL [Suspect]
     Dosage: HIGH DOSE, MULT IM INJ AND PO DOSES
     Route: 030
  2. HALOPERIDOL [Suspect]
     Dosage: HIGH DOSE, MULT IM INJ AND PO DOSES
     Route: 030

REACTIONS (3)
  - LIVER FUNCTION TEST ABNORMAL [None]
  - NEUROLEPTIC MALIGNANT SYNDROME [None]
  - URINE OUTPUT DECREASED [None]
